FAERS Safety Report 5241103-1 (Version None)
Quarter: 2007Q1

REPORT INFORMATION
  Report Type: 
  Country: None (occurrence: None)
  Receive Date: 20070220
  Receipt Date: 20070205
  Transmission Date: 20070707
  Serious: Yes (Hospitalization, Other)
  Sender: FDA-Public Use
  Company Number: US-JNJFOC-20061203221

PATIENT
  Sex: Female
  Weight: 44 kg

DRUGS (11)
  1. REMICADE [Suspect]
     Indication: RHEUMATOID ARTHRITIS
     Route: 042
  2. RITUXAN [Concomitant]
  3. PREDNISONE [Concomitant]
  4. SOTALOL HYDROCHLORIDE [Concomitant]
  5. DIGOXIN [Concomitant]
  6. COUMADIN [Concomitant]
  7. PEPCID [Concomitant]
  8. GLUCOSAMINE [Concomitant]
  9. VITAMIN CAP [Concomitant]
  10. CALCIUM [Concomitant]
  11. SEREVENT [Concomitant]

REACTIONS (3)
  - HAIR GROWTH ABNORMAL [None]
  - LUPUS-LIKE SYNDROME [None]
  - PLEURAL EFFUSION [None]
